FAERS Safety Report 19922161 (Version 6)
Quarter: 2022Q1

REPORT INFORMATION
  Report Type: Report from Study
  Country: LB (occurrence: LB)
  Receive Date: 20211006
  Receipt Date: 20220304
  Transmission Date: 20220424
  Serious: Yes (Death, Other)
  Sender: FDA-Public Use
  Company Number: NVSC2021LB223702

PATIENT
  Sex: Female
  Weight: 63 kg

DRUGS (8)
  1. KISQALI [Suspect]
     Active Substance: RIBOCICLIB
     Indication: Breast cancer
     Dosage: 3 DF, QD
     Route: 048
     Dates: start: 201909, end: 202109
  2. FEMARA [Suspect]
     Active Substance: LETROZOLE
     Indication: Breast cancer
     Route: 065
  3. AFINITOR [Suspect]
     Active Substance: EVEROLIMUS
     Indication: Breast cancer
     Dosage: 1 DF, QD (5 MG FOR ONE WEEK)
     Route: 048
     Dates: start: 202109
  4. AFINITOR [Suspect]
     Active Substance: EVEROLIMUS
     Dosage: 10 MG, QD
     Route: 048
     Dates: start: 2021
  5. AFINITOR [Suspect]
     Active Substance: EVEROLIMUS
     Dosage: 1 DF QOD (1 TAB EVERY OTHER DAY X 5 MG)
     Route: 048
     Dates: start: 20210928
  6. AFINITOR [Suspect]
     Active Substance: EVEROLIMUS
     Dosage: 1 DF QOD (1 TAB EVERY OTHER DAY X 10 MG)
     Route: 048
     Dates: start: 20210928
  7. RABEPRAZOLE SODIUM [Concomitant]
     Active Substance: RABEPRAZOLE SODIUM
     Indication: Product used for unknown indication
     Dosage: UNK
     Route: 065
  8. EXEMESTANE [Concomitant]
     Active Substance: EXEMESTANE
     Indication: Product used for unknown indication
     Dosage: UNK
     Route: 065

REACTIONS (23)
  - Tumour marker increased [Fatal]
  - Metastases to liver [Fatal]
  - Pleural effusion [Fatal]
  - Blood bilirubin increased [Fatal]
  - Stomatitis [Fatal]
  - Pruritus [Fatal]
  - Intentional product misuse [Fatal]
  - Metastases to lung [Unknown]
  - Metastases to lymph nodes [Unknown]
  - Breast cancer [Unknown]
  - Malignant neoplasm progression [Unknown]
  - Incorrect dose administered [Not Recovered/Not Resolved]
  - Chest discomfort [Unknown]
  - Clubbing [Unknown]
  - Malaise [Unknown]
  - Jaundice [Unknown]
  - Oedema peripheral [Unknown]
  - Chest pain [Unknown]
  - Dyspnoea [Unknown]
  - Cough [Unknown]
  - Tachycardia [Unknown]
  - Nausea [Unknown]
  - Fatigue [Unknown]

NARRATIVE: CASE EVENT DATE: 20190101
